FAERS Safety Report 5470097-9 (Version None)
Quarter: 2007Q3

REPORT INFORMATION
  Report Type: 
  Country: None (occurrence: None)
  Receive Date: 20070927
  Receipt Date: 20061023
  Transmission Date: 20080115
  Serious: Yes (Life-Threatening, Hospitalization)
  Sender: FDA-Public Use
  Company Number: US-AMGEN-US195621

PATIENT
  Sex: Female
  Weight: 94 kg

DRUGS (4)
  1. NEUPOGEN [Suspect]
     Indication: BLOOD STEM CELL HARVEST
     Route: 058
     Dates: start: 20060916, end: 20060920
  2. DEXAMETHASONE 0.5MG TAB [Concomitant]
     Route: 065
  3. ATENOLOL [Concomitant]
     Route: 065
  4. AMBIEN [Concomitant]
     Route: 065

REACTIONS (1)
  - SPLENIC RUPTURE [None]
